FAERS Safety Report 7569662-4 (Version None)
Quarter: 2011Q2

REPORT INFORMATION
  Report Type: 
  Country: None (occurrence: None)
  Receive Date: 20110624
  Receipt Date: 20110621
  Transmission Date: 20111010
  Serious: No
  Sender: FDA-Public Use
  Company Number: US-PFIZER INC-2011137548

PATIENT
  Sex: Male
  Weight: 74.83 kg

DRUGS (1)
  1. FLAGYL [Suspect]
     Indication: GIARDIASIS
     Dosage: UNK
     Route: 048
     Dates: start: 20090201, end: 20090101

REACTIONS (4)
  - BOWEL MOVEMENT IRREGULARITY [None]
  - GASTROINTESTINAL PAIN [None]
  - HEPATIC ENZYME INCREASED [None]
  - ABDOMINAL DISCOMFORT [None]
